FAERS Safety Report 24816977 (Version 1)
Quarter: 2025Q1

REPORT INFORMATION
  Report Type: Spontaneous
  Country: CO (occurrence: CO)
  Receive Date: 20250108
  Receipt Date: 20250108
  Transmission Date: 20250409
  Serious: Yes (Other)
  Sender: NOVO NORDISK
  Company Number: CO-NOVOPROD-1344025

PATIENT
  Age: 58 Year
  Sex: Female
  Weight: 57 kg

DRUGS (1)
  1. XULTOPHY 100/3.6 [Suspect]
     Active Substance: INSULIN DEGLUDEC\LIRAGLUTIDE
     Indication: Type 2 diabetes mellitus
     Dosage: 16 DF, QD
     Route: 058
     Dates: start: 2021

REACTIONS (2)
  - Leukoencephalopathy [Recovered/Resolved]
  - Microangiopathy [Recovered/Resolved]

NARRATIVE: CASE EVENT DATE: 20210101
